FAERS Safety Report 9851872 (Version 1)
Quarter: 2014Q1

REPORT INFORMATION
  Report Type: Report from Study
  Country: NL (occurrence: NL)
  Receive Date: 20140129
  Receipt Date: 20140129
  Transmission Date: 20141002
  Serious: Yes (Other)
  Sender: FDA-Public Use
  Company Number: NL-ROCHE-1339233

PATIENT
  Sex: Male

DRUGS (2)
  1. PEGASYS [Suspect]
     Indication: HEPATITIS C
     Dosage: PEN
     Route: 058
     Dates: end: 20140124
  2. COPEGUS [Suspect]
     Indication: HEPATITIS C
     Route: 048
     Dates: end: 20140124

REACTIONS (1)
  - Stomatitis [Unknown]
